FAERS Safety Report 7711018-5 (Version None)
Quarter: 2011Q3

REPORT INFORMATION
  Report Type: 
  Country: None (occurrence: None)
  Receive Date: 20110825
  Receipt Date: 20110812
  Transmission Date: 20111222
  Serious: Yes (Hospitalization)
  Sender: FDA-Public Use
  Company Number: US-MYLANLABS-2011S1016947

PATIENT
  Age: 12 Year
  Sex: Male

DRUGS (4)
  1. LEVETIRACETAM [Suspect]
     Route: 065
  2. ZONISAMIDE [Suspect]
     Indication: EPILEPSY
     Route: 065
  3. VALPROIC ACID [Suspect]
     Indication: EPILEPSY
     Route: 065
  4. LEVETIRACETAM [Suspect]
     Indication: EPILEPSY
     Route: 065

REACTIONS (6)
  - FALL [None]
  - MUSCLE TWITCHING [None]
  - COMPLEX PARTIAL SEIZURES [None]
  - GRAND MAL CONVULSION [None]
  - MYOCLONIC EPILEPSY [None]
  - FATIGUE [None]
